FAERS Safety Report 8248448-1 (Version None)
Quarter: 2012Q1

REPORT INFORMATION
  Report Type: 
  Country: None (occurrence: None)
  Receive Date: 20120330
  Receipt Date: 20120322
  Transmission Date: 20120608
  Serious: Yes (Other)
  Sender: FDA-Public Use
  Company Number: DE-ELI_LILLY_AND_COMPANY-DE201112003697

PATIENT
  Age: 82 Year
  Sex: Female

DRUGS (3)
  1. DEKRISTOL [Concomitant]
     Dosage: 3 DF, WEEKLY (1/W)
  2. ANTIHYPERTENSIVES [Concomitant]
  3. FORTEO [Suspect]
     Indication: OSTEOPOROSIS
     Dosage: UNK, QD
     Route: 058
     Dates: start: 20110114

REACTIONS (3)
  - PULMONARY FUNCTION TEST DECREASED [None]
  - HEART VALVE CALCIFICATION [None]
  - DYSPNOEA [None]
